FAERS Safety Report 7908985-3 (Version None)
Quarter: 2011Q4

REPORT INFORMATION
  Report Type: 
  Country: None (occurrence: None)
  Receive Date: 20111108
  Receipt Date: 20111103
  Transmission Date: 20120403
  Serious: Yes (Life-Threatening)
  Sender: FDA-Public Use
  Company Number: 2011SP051752

PATIENT
  Age: 63 Year
  Sex: Male

DRUGS (5)
  1. FLUTICASONE PROPIONATE/SALMETEROL [Suspect]
     Indication: ASTHMA
     Dosage: 2 DF; BID; RESP
     Route: 055
  2. SINGULAIR [Suspect]
     Indication: ASTHMA
     Dosage: 10 MG; QD; PO
     Route: 048
  3. XOLAIR [Suspect]
     Indication: ASTHMA
     Dosage: 300 MG; QM; SC
     Route: 058
     Dates: start: 20091217, end: 20110620
  4. NASONEX [Suspect]
     Indication: ASTHMA
  5. VENTOLIN [Suspect]
     Indication: ASTHMA
     Dosage: PRN; RESP
     Route: 055

REACTIONS (1)
  - BRONCHIOLOALVEOLAR CARCINOMA [None]
